FAERS Safety Report 23774220 (Version 1)
Quarter: 2024Q2

REPORT INFORMATION
  Report Type: Spontaneous
  Country: US (occurrence: US)
  Receive Date: 20240423
  Receipt Date: 20240423
  Transmission Date: 20240716
  Serious: No
  Sender: FDA-Public Use
  Company Number: US-TEVA-VS-3180229

PATIENT
  Age: 53 Year
  Sex: Female

DRUGS (1)
  1. AUSTEDO XR [Suspect]
     Active Substance: DEUTETRABENAZINE
     Indication: Chorea
     Dosage: 24 MG + 12 MG TAB FOR A TOTAL OF 36 MG DAILY
     Route: 065

REACTIONS (2)
  - Depression [Unknown]
  - Weight increased [Unknown]
